FAERS Safety Report 4337400-4 (Version None)
Quarter: 2004Q2

REPORT INFORMATION
  Report Type: 
  Country: None (occurrence: None)
  Receive Date: 20040412
  Receipt Date: 20040412
  Transmission Date: 20050107
  Serious: Yes (Other)
  Sender: FDA-Public Use
  Company Number: None

PATIENT
  Sex: Male
  Weight: 90.7194 kg

DRUGS (2)
  1. ZOLOFT [Suspect]
     Indication: ANXIETY
     Dosage: 100 MG 2X A DAY ORAL
     Route: 048
     Dates: start: 20031021, end: 20040406
  2. ZOLOFT [Suspect]
     Indication: DEPRESSION
     Dosage: 100 MG 2X A DAY ORAL
     Route: 048
     Dates: start: 20031021, end: 20040406

REACTIONS (5)
  - AGGRESSION [None]
  - CONFUSIONAL STATE [None]
  - DRUG DEPENDENCE [None]
  - DRUG WITHDRAWAL SYNDROME [None]
  - MOTOR DYSFUNCTION [None]
